FAERS Safety Report 6494701-1 (Version None)
Quarter: 2009Q4

REPORT INFORMATION
  Report Type: 
  Country: None (occurrence: None)
  Receive Date: 20091214
  Receipt Date: 20090317
  Transmission Date: 20100525
  Serious: No
  Sender: FDA-Public Use
  Company Number: US-BRISTOL-MYERS SQUIBB COMPANY-14547236

PATIENT
  Age: 22 Year
  Sex: Female
  Weight: 77 kg

DRUGS (7)
  1. ABILIFY [Suspect]
     Indication: BIPOLAR DISORDER
     Dosage: DOSAGE FORM=TABS;BEGAN 5MG,1/2TAB,BID;INCREASED TO 1TAB,BID.
     Dates: start: 20080201, end: 20080219
  2. DEPO-PROVERA [Concomitant]
     Dosage: DURATION OF THERAPY: OVER 3 YEARS
  3. LEXAPRO [Concomitant]
     Dosage: DURATION OF THERAPY: 2-3YRS
  4. XANAX [Concomitant]
  5. LORTAB [Concomitant]
     Dosage: 1DOSAGE FORM=7.5-500MG; NUMBER OF DOSAGES:Q4 TO 6HRS
  6. SEROQUEL [Concomitant]
     Dates: end: 20080101
  7. ALEVE (CAPLET) [Concomitant]

REACTIONS (3)
  - FEELING ABNORMAL [None]
  - SPEECH DISORDER [None]
  - THINKING ABNORMAL [None]
